FAERS Safety Report 6007568-2 (Version None)
Quarter: 2008Q4

REPORT INFORMATION
  Report Type: 
  Country: None (occurrence: None)
  Receive Date: 20081217
  Receipt Date: 20080512
  Transmission Date: 20090506
  Serious: No
  Sender: FDA-Public Use
  Company Number: US-ASTRAZENECA-2008UW09755

PATIENT
  Age: 49 Year
  Sex: Male

DRUGS (2)
  1. CRESTOR [Suspect]
     Indication: BLOOD CHOLESTEROL
     Route: 048
     Dates: start: 20060101, end: 20080101
  2. CRESTOR [Suspect]
     Route: 048
     Dates: start: 20080501

REACTIONS (2)
  - ASTHENIA [None]
  - BLOOD CHOLESTEROL INCREASED [None]
